FAERS Safety Report 14813849 (Version 1)
Quarter: 2018Q2

REPORT INFORMATION
  Report Type: Spontaneous
  Country: IT (occurrence: IT)
  Receive Date: 20180426
  Receipt Date: 20180426
  Transmission Date: 20180711
  Serious: Yes (Other)
  Sender: FDA-Public Use
  Company Number: IT-TEVA-2018-IT-885862

PATIENT
  Age: 65 Year
  Sex: Female

DRUGS (2)
  1. PROPAFENONE. [Suspect]
     Active Substance: PROPAFENONE
     Indication: ATRIAL FIBRILLATION
     Route: 048
  2. CLEXANE T [Concomitant]
     Active Substance: ENOXAPARIN SODIUM

REACTIONS (2)
  - Atrial fibrillation [Unknown]
  - Tachycardia [Unknown]
